FAERS Safety Report 25946459 (Version 1)
Quarter: 2025Q4

REPORT INFORMATION
  Report Type: Spontaneous
  Country: US (occurrence: US)
  Receive Date: 20251022
  Receipt Date: 20251022
  Transmission Date: 20260117
  Serious: No
  Sender: CELLTRION
  Company Number: US-CELLTRION INC.-2024US021846

PATIENT

DRUGS (1)
  1. INFLECTRA [Suspect]
     Active Substance: INFLIXIMAB-DYYB
     Indication: Rheumatoid arthritis
     Dosage: EVERY SIX WEEKS (NOT SURE OF HIS START DATE BUT I BELIEVE HE HAS BEEN ON IT ALMOST TWO YEARS NOW)
     Route: 042

REACTIONS (5)
  - Pain [Unknown]
  - Product use issue [Unknown]
  - Product dispensing issue [Unknown]
  - Product dose omission issue [Unknown]
  - Therapeutic product effect decreased [Unknown]
